FAERS Safety Report 13879748 (Version 1)
Quarter: 2017Q3

REPORT INFORMATION
  Report Type: Spontaneous
  Country: US (occurrence: US)
  Receive Date: 20170814
  Receipt Date: 20170814
  Transmission Date: 20171127
  Serious: No
  Sender: FDA-Public Use
  Company Number: None

PATIENT
  Age: 19 Year
  Sex: Male
  Weight: 59.85 kg

DRUGS (2)
  1. IBUPROFEN. [Concomitant]
     Active Substance: IBUPROFEN
  2. SERTRALINE [Suspect]
     Active Substance: SERTRALINE HYDROCHLORIDE
     Indication: ANXIETY
     Dosage: ?          QUANTITY:1 TABLET(S); ORAL?
     Route: 048
     Dates: start: 20170720, end: 20170721

REACTIONS (12)
  - Headache [None]
  - Pyrexia [None]
  - Paraesthesia [None]
  - Eye irritation [None]
  - Confusional state [None]
  - Chills [None]
  - Dizziness [None]
  - Ocular hyperaemia [None]
  - Amnesia [None]
  - Muscle twitching [None]
  - Insomnia [None]
  - Weight decreased [None]

NARRATIVE: CASE EVENT DATE: 20170812
